FAERS Safety Report 11771591 (Version 1)
Quarter: 2015Q4

REPORT INFORMATION
  Report Type: Spontaneous
  Country: US (occurrence: US)
  Receive Date: 20151124
  Receipt Date: 20151124
  Transmission Date: 20160304
  Serious: No
  Sender: FDA-Public Use
  Company Number: US-BAYER-2015-470592

PATIENT
  Sex: Female

DRUGS (4)
  1. MULTIVITAMIN [Concomitant]
     Active Substance: VITAMINS
  2. SPRYCEL [Concomitant]
     Active Substance: DASATINIB
  3. SKYLA [Suspect]
     Active Substance: LEVONORGESTREL
     Indication: MYELOID LEUKAEMIA
     Dosage: 14 MCG/24HR, CONT
     Route: 015
  4. IBUPROFEN. [Concomitant]
     Active Substance: IBUPROFEN

REACTIONS (3)
  - Generalised oedema [None]
  - Oedema peripheral [None]
  - Off label use [None]
